FAERS Safety Report 12287193 (Version 1)
Quarter: 2016Q2

REPORT INFORMATION
  Report Type: Spontaneous
  Country: US (occurrence: US)
  Receive Date: 20160420
  Receipt Date: 20160420
  Transmission Date: 20160815
  Serious: Yes (Other)
  Sender: FDA-Public Use
  Company Number: US-BAYER-2016-072766

PATIENT
  Age: 31 Year
  Sex: Female

DRUGS (18)
  1. CEFTRIAXONE. [Concomitant]
     Active Substance: CEFTRIAXONE
  2. KEFLEX [Concomitant]
     Active Substance: CEPHALEXIN
  3. FOLIC ACID. [Concomitant]
     Active Substance: FOLIC ACID
  4. ZOLOFT [Concomitant]
     Active Substance: SERTRALINE HYDROCHLORIDE
  5. YASMIN [Suspect]
     Active Substance: DROSPIRENONE\ETHINYL ESTRADIOL
     Indication: ORAL CONTRACEPTION
     Route: 048
  6. COMPAZINE [Concomitant]
     Active Substance: PROCHLORPERAZINE MALEATE
  7. DILAUDID [Concomitant]
     Active Substance: HYDROMORPHONE HYDROCHLORIDE
  8. YAZ [Suspect]
     Active Substance: DROSPIRENONE\ETHINYL ESTRADIOL
     Route: 048
  9. NEURONTIN [Concomitant]
     Active Substance: GABAPENTIN
  10. ATIVAN [Concomitant]
     Active Substance: LORAZEPAM
  11. OCELLA [Suspect]
     Active Substance: DROSPIRENONE\ETHINYL ESTRADIOL
     Route: 048
  12. ZOFRAN [Concomitant]
     Active Substance: ONDANSETRON HYDROCHLORIDE
  13. INDERAL [Concomitant]
     Active Substance: PROPRANOLOL HYDROCHLORIDE
  14. ZOVIRAX [Concomitant]
     Active Substance: ACYCLOVIR
  15. THIAMINE. [Concomitant]
     Active Substance: THIAMINE
  16. PERCOCET [Concomitant]
     Active Substance: ACETAMINOPHEN\OXYCODONE HYDROCHLORIDE
  17. FLEXERIL [Concomitant]
     Active Substance: CYCLOBENZAPRINE HYDROCHLORIDE
  18. PROTONIX [Concomitant]
     Active Substance: PANTOPRAZOLE SODIUM

REACTIONS (1)
  - Deep vein thrombosis [None]

NARRATIVE: CASE EVENT DATE: 201210
